FAERS Safety Report 9180577 (Version 1)
Quarter: 2013Q1

REPORT INFORMATION
  Report Type: Spontaneous
  Country: BR (occurrence: None)
  Receive Date: 20130320
  Receipt Date: 20130320
  Transmission Date: 20140127
  Serious: Yes (Hospitalization)
  Sender: FDA-Public Use
  Company Number: SYM-2013-01737

PATIENT
  Age: 47 Year
  Sex: Male

DRUGS (1)
  1. TIMOPTOL-XE [Suspect]

REACTIONS (3)
  - Umbilical hernia [None]
  - Vocal cord polyp [None]
  - Helicobacter infection [None]
